FAERS Safety Report 19178707 (Version 4)
Quarter: 2022Q3

REPORT INFORMATION
  Report Type: Spontaneous
  Country: CO (occurrence: CO)
  Receive Date: 20210426
  Receipt Date: 20220923
  Transmission Date: 20221026
  Serious: Yes (Other)
  Sender: FDA-Public Use
  Company Number: CO-PFIZER INC-2021415307

PATIENT
  Age: 57 Year
  Sex: Female

DRUGS (1)
  1. ENBREL [Suspect]
     Active Substance: ETANERCEPT
     Indication: Product used for unknown indication
     Dosage: 50 MG, CYCLIC (1 APPLICATION EVERY 8 DAYS)
     Route: 058
     Dates: start: 2011

REACTIONS (11)
  - Joint dislocation [Unknown]
  - Nasal septum deviation [Unknown]
  - Eating disorder [Unknown]
  - Off label use [Unknown]
  - Pain in jaw [Unknown]
  - Neck pain [Unknown]
  - Jaw disorder [Unknown]
  - Foot deformity [Unknown]
  - Pain in extremity [Unknown]
  - Elbow deformity [Unknown]
  - Pain [Unknown]

NARRATIVE: CASE EVENT DATE: 20110101
